FAERS Safety Report 6204328-4 (Version None)
Quarter: 2009Q2

REPORT INFORMATION
  Report Type: 
  Country: None (occurrence: None)
  Receive Date: 20090522
  Receipt Date: 20090508
  Transmission Date: 20091009
  Serious: Yes (Other)
  Sender: FDA-Public Use
  Company Number: OSCN-PR-0905S-0227

PATIENT
  Sex: Female

DRUGS (5)
  1. OMNISCAN [Suspect]
     Dosage: SINGLE DOSE
     Dates: start: 20050503, end: 20050503
  2. OMNISCAN [Suspect]
     Dosage: SINGLE DOSE
     Dates: start: 20051012, end: 20051012
  3. OMNISCAN [Suspect]
     Dosage: SINGLE DOSE
     Dates: start: 20051201, end: 20051201
  4. OMNISCAN [Suspect]
     Dosage: SINGLE DOSE
     Dates: start: 20060316, end: 20060316
  5. OMNISCAN [Suspect]
     Dosage: SINGLE DOSE
     Dates: start: 20061123, end: 20061123

REACTIONS (1)
  - NEPHROGENIC SYSTEMIC FIBROSIS [None]
